FAERS Safety Report 6017503-9 (Version None)
Quarter: 2008Q4

REPORT INFORMATION
  Report Type: 
  Country: None (occurrence: None)
  Receive Date: 20081223
  Receipt Date: 20080515
  Transmission Date: 20090506
  Serious: Yes (Other)
  Sender: FDA-Public Use
  Company Number: US-BRISTOL-MYERS SQUIBB COMPANY-14192413

PATIENT
  Age: 52 Year
  Sex: Female

DRUGS (10)
  1. CARDIOLITE [Suspect]
  2. ZOCOR [Concomitant]
  3. LISINOPRIL [Concomitant]
  4. NAPROXEN [Concomitant]
  5. SINGULAIR [Concomitant]
  6. MAXIDEX [Concomitant]
  7. LEXAPRO [Concomitant]
  8. COMBIVENT [Concomitant]
  9. ADVAIR DISKUS 250/50 [Concomitant]
  10. KLONOPIN [Concomitant]

REACTIONS (2)
  - EYE SWELLING [None]
  - THROAT TIGHTNESS [None]
